FAERS Safety Report 12686945 (Version 2)
Quarter: 2016Q3

REPORT INFORMATION
  Report Type: Spontaneous
  Country: TW (occurrence: TW)
  Receive Date: 20160826
  Receipt Date: 20160901
  Transmission Date: 20161109
  Serious: Yes (Other)
  Sender: FDA-Public Use
  Company Number: TW-ROCHE-1817427

PATIENT
  Age: 50 Year

DRUGS (2)
  1. PEGASYS [Suspect]
     Active Substance: PEGINTERFERON ALFA-2A
     Indication: HEPATITIS C
     Route: 065
     Dates: start: 20160315, end: 2016
  2. ROBATROL [Suspect]
     Active Substance: RIBAVIRIN
     Indication: HEPATITIS C
     Route: 065
     Dates: start: 20160315

REACTIONS (6)
  - Poor quality sleep [Recovering/Resolving]
  - Sjogren^s syndrome [Unknown]
  - Brain oedema [Unknown]
  - Dizziness [Unknown]
  - Speech disorder [Unknown]
  - Cold sweat [Unknown]

NARRATIVE: CASE EVENT DATE: 20160322
